FAERS Safety Report 7481146-0 (Version None)
Quarter: 2011Q2

REPORT INFORMATION
  Report Type: 
  Country: None (occurrence: None)
  Receive Date: 20110516
  Receipt Date: 20110503
  Transmission Date: 20111010
  Serious: Yes (Hospitalization)
  Sender: FDA-Public Use
  Company Number: PHHY2011IT39258

PATIENT
  Sex: Female

DRUGS (3)
  1. LAMICTAL [Suspect]
     Indication: EPILEPSY
     Dosage: 1 G, UNK
     Route: 048
     Dates: start: 20110106
  2. TEGRETOL [Suspect]
     Indication: EPILEPSY
     Dosage: 400 MG,DAILY
     Route: 048
     Dates: start: 20110306
  3. TEGRETOL [Suspect]
     Dosage: 1 TABLET AT 8AM, HALF TABLET AT 12AM AND 1 TABLET AT 10PM
     Route: 048

REACTIONS (3)
  - ARTHROPATHY [None]
  - BURNING SENSATION [None]
  - GLOSSODYNIA [None]
